FAERS Safety Report 13088563 (Version 1)
Quarter: 2017Q1

REPORT INFORMATION
  Report Type: Spontaneous
  Country: US (occurrence: US)
  Receive Date: 20170105
  Receipt Date: 20170105
  Transmission Date: 20170428
  Serious: No
  Sender: FDA-Public Use
  Company Number: None

PATIENT
  Age: 55 Year
  Sex: Female

DRUGS (1)
  1. REBIF [Suspect]
     Active Substance: INTERFERON BETA-1A
     Indication: MULTIPLE SCLEROSIS
     Dosage: 44MCG 3 TIMES PER WEEK
     Route: 058
     Dates: start: 20150730

REACTIONS (1)
  - Genital neoplasm malignant female [None]

NARRATIVE: CASE EVENT DATE: 20161223
